FAERS Safety Report 7595899-4 (Version None)
Quarter: 2011Q3

REPORT INFORMATION
  Report Type: 
  Country: None (occurrence: None)
  Receive Date: 20110707
  Receipt Date: 20110630
  Transmission Date: 20111222
  Serious: Yes (Hospitalization)
  Sender: FDA-Public Use
  Company Number: AU-JNJFOC-20100901080

PATIENT
  Sex: Female

DRUGS (2)
  1. STELARA [Suspect]
     Route: 058
     Dates: start: 20100626
  2. STELARA [Suspect]
     Indication: PRODUCT USED FOR UNKNOWN INDICATION
     Route: 058
     Dates: start: 20110627

REACTIONS (6)
  - NASOPHARYNGITIS [None]
  - ECZEMA [None]
  - INSOMNIA [None]
  - HEADACHE [None]
  - BLOOD CHOLESTEROL INCREASED [None]
  - URINARY TRACT INFECTION [None]
